FAERS Safety Report 5405911-6 (Version None)
Quarter: 2007Q3

REPORT INFORMATION
  Report Type: 
  Country: None (occurrence: None)
  Receive Date: 20070806
  Receipt Date: 20070727
  Transmission Date: 20080115
  Serious: Yes (Other)
  Sender: FDA-Public Use
  Company Number: IE-AVENTIS-200716961GDDC

PATIENT
  Age: 76 Year
  Sex: Male

DRUGS (13)
  1. FLAGYL [Suspect]
     Dates: start: 20061215
  2. FLUCILLIN [Suspect]
     Dates: start: 20061204
  3. CARDICOR [Concomitant]
     Dosage: DOSE: UNK
  4. MOTILIUM [Concomitant]
     Dosage: DOSE: UNK
  5. ELTROXIN [Concomitant]
     Dosage: DOSE: UNK
  6. GALFER [Concomitant]
     Dosage: DOSE: UNK
  7. FOSAMAX [Concomitant]
     Dosage: DOSE: UNK
  8. ARANESP [Concomitant]
     Dosage: DOSE: UNK
  9. MOVICOL                            /01053601/ [Concomitant]
     Dosage: DOSE: UNK
  10. TRITACE [Concomitant]
     Dosage: DOSE: UNK
  11. NU-SEALS ASPIRIN [Concomitant]
     Dosage: DOSE: UNK
  12. TRADOL [Concomitant]
     Dosage: DOSE: UNK
  13. PANTOPRAZOLE SODIUM [Concomitant]
     Dosage: DOSE: UNK

REACTIONS (1)
  - JAUNDICE [None]
